FAERS Safety Report 11072496 (Version 1)
Quarter: 2015Q2

REPORT INFORMATION
  Report Type: Spontaneous
  Country: DK (occurrence: None)
  Receive Date: 20150424
  Receipt Date: 20150424
  Transmission Date: 20150821
  Serious: Yes (Hospitalization, Other)
  Sender: FDA-Public Use
  Company Number: 8016698D

PATIENT
  Age: 20 Year
  Sex: Female

DRUGS (10)
  1. ZOLOFT [Suspect]
     Active Substance: SERTRALINE HYDROCHLORIDE
     Indication: DEPRESSION
     Dates: start: 2006, end: 201312
  2. ELTROXIN (LEVOTHYROXINE SODIUM) [Suspect]
     Active Substance: LEVOTHYROXINE
     Indication: PRODUCT USED FOR UNKNOWN INDICATION
     Dosage: RECEIVED IN PAST (UNSPECIFIED DATE)
  3. VENLAFAXINE [Concomitant]
     Active Substance: VENLAFAXINE HYDROCHLORIDE
  4. MALONETTA [Suspect]
     Active Substance: ETHINYL ESTRADIOL\LEVONORGESTREL
     Indication: CONTRACEPTION
     Dates: end: 2006
  5. SINGULAIR [Concomitant]
     Active Substance: MONTELUKAST SODIUM
  6. ROXITHROMYCIN [Concomitant]
     Active Substance: ROXITHROMYCIN
  7. EUTHYROX [Suspect]
     Active Substance: LEVOTHYROXINE SODIUM
     Indication: PRODUCT USED FOR UNKNOWN INDICATION
  8. ZOLOFT [Suspect]
     Active Substance: SERTRALINE HYDROCHLORIDE
     Indication: OBSESSIVE-COMPULSIVE DISORDER
     Dates: start: 2006, end: 201312
  9. YASMINELLE (AIDA ETHINYLESTRADIOL BETADEX CLATHRATE) [Concomitant]
  10. TRUXAL (CHLORPROTHIXENE)? [Concomitant]

REACTIONS (6)
  - Feeling abnormal [None]
  - Metabolic disorder [None]
  - Weight decreased [None]
  - Abdominal pain upper [None]
  - Arthralgia [None]
  - Drug interaction [None]

NARRATIVE: CASE EVENT DATE: 2012
